FAERS Safety Report 18988348 (Version 10)
Quarter: 2022Q2

REPORT INFORMATION
  Report Type: Spontaneous
  Country: BR (occurrence: BR)
  Receive Date: 20210309
  Receipt Date: 20220530
  Transmission Date: 20220721
  Serious: Yes (Hospitalization, Other)
  Sender: FDA-Public Use
  Company Number: BR-GLAXOSMITHKLINE-BR2020AMR187630

PATIENT

DRUGS (4)
  1. NUCALA [Suspect]
     Active Substance: MEPOLIZUMAB
     Indication: Asthma
     Dosage: 100 MG, Z MONTHLY
     Route: 042
     Dates: start: 20200618
  2. NUCALA [Suspect]
     Active Substance: MEPOLIZUMAB
     Indication: Eosinophilic granulomatosis with polyangiitis
     Dosage: 100 MG, Z MONTHLY
     Route: 058
     Dates: end: 20210304
  3. NALTREXONE [Suspect]
     Active Substance: NALTREXONE
     Indication: Product used for unknown indication
     Dosage: 3.5 MG
  4. LEVOFLOXACIN [Concomitant]
     Active Substance: LEVOFLOXACIN
     Indication: Product used for unknown indication
     Dosage: UNK

REACTIONS (54)
  - Pyrexia [Recovered/Resolved]
  - Cough [Recovered/Resolved]
  - Pneumonia [Recovered/Resolved]
  - Oxygen saturation decreased [Unknown]
  - Muscle atrophy [Unknown]
  - Mobility decreased [Unknown]
  - COVID-19 [Recovered/Resolved]
  - Sjogren^s syndrome [Unknown]
  - Hallucination [Unknown]
  - COVID-19 pneumonia [Unknown]
  - Eosinophilic granulomatosis with polyangiitis [Unknown]
  - Hospitalisation [Not Recovered/Not Resolved]
  - Productive cough [Unknown]
  - Leukocytosis [Unknown]
  - Red blood cell sedimentation rate abnormal [Unknown]
  - Respiratory disorder [Unknown]
  - Infection [Not Recovered/Not Resolved]
  - Therapy interrupted [Unknown]
  - Viral infection [Unknown]
  - Malaise [Unknown]
  - Oropharyngeal pain [Unknown]
  - Rhinitis [Not Recovered/Not Resolved]
  - Fatigue [Recovering/Resolving]
  - Sciatica [Not Recovered/Not Resolved]
  - Spinal pain [Not Recovered/Not Resolved]
  - Back pain [Not Recovered/Not Resolved]
  - Arthralgia [Not Recovered/Not Resolved]
  - Balance disorder [Not Recovered/Not Resolved]
  - Asthenia [Recovering/Resolving]
  - Weight increased [Unknown]
  - Dermatitis allergic [Unknown]
  - Pruritus [Unknown]
  - Feeling abnormal [Unknown]
  - Crying [Unknown]
  - Nasal crusting [Unknown]
  - Dry mouth [Unknown]
  - Nasal dryness [Unknown]
  - Epistaxis [Unknown]
  - Memory impairment [Unknown]
  - Dyspnoea [Unknown]
  - Myalgia [Recovering/Resolving]
  - Pulmonary pain [Recovering/Resolving]
  - Musculoskeletal chest pain [Recovering/Resolving]
  - Laboratory test abnormal [Unknown]
  - Rib fracture [Not Recovered/Not Resolved]
  - Pneumonitis [Unknown]
  - Drug hypersensitivity [Unknown]
  - Sleep apnoea syndrome [Not Recovered/Not Resolved]
  - Oxygen saturation abnormal [Unknown]
  - Anaemia [Not Recovered/Not Resolved]
  - Nasal congestion [Not Recovered/Not Resolved]
  - Sinusitis [Recovered/Resolved]
  - Product dose omission issue [Unknown]
  - Inappropriate schedule of product administration [Unknown]

NARRATIVE: CASE EVENT DATE: 20210101
